FAERS Safety Report 7004130-X (Version None)
Quarter: 2010Q3

REPORT INFORMATION
  Report Type: 
  Country: None (occurrence: None)
  Receive Date: 20100920
  Receipt Date: 20100126
  Transmission Date: 20110219
  Serious: No
  Sender: FDA-Public Use
  Company Number: US-WYE-H13270510

PATIENT
  Sex: Male

DRUGS (5)
  1. PRISTIQ [Suspect]
     Dosage: 100 MG, FREQUENCY NOT SPECIFIED
  2. PRISTIQ [Suspect]
     Dosage: ^TAPERED DOWN^
  3. PRISTIQ [Suspect]
     Dosage: 25 MG, FREQUENCY NOT SPECIFIED
  4. PRISTIQ [Suspect]
     Dosage: RESTARTED AT AN UNSPECIFIED DOSE
  5. LORAZEPAM [Concomitant]

REACTIONS (2)
  - DRUG INEFFECTIVE [None]
  - SEXUAL DYSFUNCTION [None]
